FAERS Safety Report 13066771 (Version 2)
Quarter: 2017Q1

REPORT INFORMATION
  Report Type: Report from Study
  Country: US (occurrence: US)
  Receive Date: 20161227
  Receipt Date: 20170109
  Transmission Date: 20170428
  Serious: Yes (Death, Hospitalization)
  Sender: FDA-Public Use
  Company Number: US-ACTELION-A-US2016-132259

PATIENT
  Age: 73 Year
  Sex: Female

DRUGS (7)
  1. OMEPRAZOLE. [Concomitant]
     Active Substance: OMEPRAZOLE
     Dosage: 40 MG, UNK
  2. SIMVASTATIN. [Concomitant]
     Active Substance: SIMVASTATIN
     Dosage: 20 MG, UNK
  3. SPIRONOLACTONE. [Concomitant]
     Active Substance: SPIRONOLACTONE
     Dosage: 25 MG, UNK
  4. FLUTICASONE. [Concomitant]
     Active Substance: FLUTICASONE
     Dosage: 50 MCG, UNK
  5. OPSUMIT [Suspect]
     Active Substance: MACITENTAN
     Indication: PULMONARY ARTERIAL HYPERTENSION
     Dosage: 10 MG, UNK
     Route: 048
     Dates: start: 20160115, end: 20161206
  6. CARVEDILOL. [Concomitant]
     Active Substance: CARVEDILOL
     Dosage: 6.25 MG, UNK
  7. GLIMEPIRIDE. [Concomitant]
     Active Substance: GLIMEPIRIDE
     Dosage: 4 MG, UNK

REACTIONS (17)
  - Oedema peripheral [Recovering/Resolving]
  - Oedema [Fatal]
  - Pleural effusion [Recovered/Resolved]
  - Respiratory failure [Fatal]
  - Right ventricular failure [Recovering/Resolving]
  - Bronchitis [Unknown]
  - Weight increased [Fatal]
  - Acute respiratory failure [Fatal]
  - Dyspnoea [Fatal]
  - Orthopnoea [Fatal]
  - Abdominal distension [Recovering/Resolving]
  - Hyponatraemia [Unknown]
  - Dyspnoea paroxysmal nocturnal [Fatal]
  - Acute kidney injury [Recovering/Resolving]
  - Pulmonary oedema [Unknown]
  - Cardiac failure congestive [Fatal]
  - Swelling face [Recovering/Resolving]

NARRATIVE: CASE EVENT DATE: 201601
